FAERS Safety Report 11174129 (Version 1)
Quarter: 2015Q2

REPORT INFORMATION
  Report Type: Spontaneous
  Country: PK (occurrence: None)
  Receive Date: 20150605
  Receipt Date: 20150605
  Transmission Date: 20150821
  Serious: Yes (Other)
  Sender: FDA-Public Use
  Company Number: KAD201505-001334

PATIENT
  Age: 35 Year
  Sex: Male

DRUGS (2)
  1. INTERFERON ALFA NOS [Suspect]
     Active Substance: INTERFERON ALFA-2A OR INTERFERON ALFA-2B
     Indication: HEPATITIS C
  2. RIBAVIRIN (RIBAVIRIN) [Suspect]
     Active Substance: RIBAVIRIN
     Indication: HEPATITIS C

REACTIONS (12)
  - Blindness [None]
  - Hypertonia [None]
  - Multiple sclerosis [None]
  - Asterixis [None]
  - Hyperreflexia [None]
  - Nuclear magnetic resonance imaging brain abnormal [None]
  - Clonus [None]
  - Jaundice [None]
  - Hepatic encephalopathy [None]
  - Anaemia [None]
  - CSF immunoglobulin increased [None]
  - Altered state of consciousness [None]
